FAERS Safety Report 9200758 (Version 1)
Quarter: 2013Q1

REPORT INFORMATION
  Report Type: Spontaneous
  Country: US (occurrence: None)
  Receive Date: 20130328
  Receipt Date: 20130328
  Transmission Date: 20140127
  Serious: No
  Sender: FDA-Public Use
  Company Number: None

PATIENT
  Age: 35 Year
  Sex: Male

DRUGS (1)
  1. HALOPERIDOL [Suspect]
     Dosage: 200 MG EVERY 2 WEEKS IM
     Route: 030

REACTIONS (1)
  - Tremor [None]
